FAERS Safety Report 23764894 (Version 3)
Quarter: 2024Q2

REPORT INFORMATION
  Report Type: Spontaneous
  Country: FR (occurrence: FR)
  Receive Date: 20240420
  Receipt Date: 20240612
  Transmission Date: 20240716
  Serious: No
  Sender: FDA-Public Use
  Company Number: FR-SA-SAC20240416001538

PATIENT
  Sex: Male

DRUGS (3)
  1. SUTIMLIMAB [Suspect]
     Active Substance: SUTIMLIMAB
     Indication: Haemolytic anaemia
     Dosage: UNK, QW
     Route: 065
     Dates: start: 20240410
  2. SUTIMLIMAB [Suspect]
     Active Substance: SUTIMLIMAB
     Indication: Cold type haemolytic anaemia
  3. SUTIMLIMAB [Suspect]
     Active Substance: SUTIMLIMAB
     Indication: Chronic myeloid leukaemia

REACTIONS (1)
  - Off label use [Unknown]

NARRATIVE: CASE EVENT DATE: 20240401
